FAERS Safety Report 8425320-5 (Version None)
Quarter: 2012Q2

REPORT INFORMATION
  Report Type: 
  Country: None (occurrence: None)
  Receive Date: 20120605
  Receipt Date: 20120605
  Transmission Date: 20120825
  Serious: Yes (Hospitalization)
  Sender: FDA-Public Use
  Company Number: None

PATIENT
  Age: 63 Year
  Sex: Male

DRUGS (2)
  1. ROPINIROLE [Suspect]
     Indication: CHOREA
  2. LORAZEPAM [Suspect]
     Indication: AGITATION

REACTIONS (2)
  - DISORIENTATION [None]
  - AGITATION [None]
